FAERS Safety Report 7764693-3 (Version None)
Quarter: 2011Q3

REPORT INFORMATION
  Report Type: 
  Country: None (occurrence: None)
  Receive Date: 20110921
  Receipt Date: 20110919
  Transmission Date: 20111222
  Serious: Yes (Death, Hospitalization)
  Sender: FDA-Public Use
  Company Number: PHHY2011CR83258

PATIENT
  Age: 59 Year
  Sex: Female

DRUGS (2)
  1. TRILEPTAL [Suspect]
     Indication: PARKINSON'S DISEASE
     Dosage: 300 MG, QD
     Route: 048
  2. INSULIN [Concomitant]
     Dosage: UNK UKN, UNK

REACTIONS (1)
  - ACUTE MYOCARDIAL INFARCTION [None]
